FAERS Safety Report 24797441 (Version 2)
Quarter: 2025Q1

REPORT INFORMATION
  Report Type: Other
  Country: US (occurrence: US)
  Receive Date: 20250102
  Receipt Date: 20250124
  Transmission Date: 20250409
  Serious: No
  Sender: SUNOVION
  Company Number: US-SMPA-2024SPA006091AA

PATIENT

DRUGS (2)
  1. ORGOVYX [Suspect]
     Active Substance: RELUGOLIX
     Indication: Prostate cancer
     Route: 048
  2. ORGOVYX [Suspect]
     Active Substance: RELUGOLIX
     Dosage: 120 MG, QD
     Route: 048

REACTIONS (2)
  - Incorrect dose administered [Unknown]
  - Therapy interrupted [Unknown]
